FAERS Safety Report 18099804 (Version 3)
Quarter: 2020Q3

REPORT INFORMATION
  Report Type: Report from Study
  Country: US (occurrence: US)
  Receive Date: 20200731
  Receipt Date: 20200915
  Transmission Date: 20201103
  Serious: No
  Sender: FDA-Public Use
  Company Number: NVSC2020US209772

PATIENT
  Sex: Female

DRUGS (1)
  1. GILENYA [Suspect]
     Active Substance: FINGOLIMOD HYDROCHLORIDE
     Indication: MULTIPLE SCLEROSIS
     Dosage: 0.5 MG, QD
     Route: 048
     Dates: start: 20180224

REACTIONS (8)
  - Weight decreased [Not Recovered/Not Resolved]
  - Depressed mood [Not Recovered/Not Resolved]
  - Migraine with aura [Not Recovered/Not Resolved]
  - Vertigo [Unknown]
  - Ill-defined disorder [Unknown]
  - Sleep disorder [Not Recovered/Not Resolved]
  - Muscular weakness [Unknown]
  - Pain [Unknown]
